FAERS Safety Report 5871730-X (Version None)
Quarter: 2008Q3

REPORT INFORMATION
  Report Type: 
  Country: None (occurrence: None)
  Receive Date: 20080904
  Receipt Date: 20080904
  Transmission Date: 20090109
  Serious: Yes (Other)
  Sender: FDA-Public Use
  Company Number: None

PATIENT
  Age: 53 Year
  Sex: Female
  Weight: 78.0187 kg

DRUGS (12)
  1. OMALIZUMAB [Suspect]
     Indication: ASTHMA
     Dosage: 300 MG Q 2 WEEKS SQ
     Route: 058
     Dates: start: 20080805
  2. OMALIZUMAB [Suspect]
     Indication: ASTHMA
     Dosage: 300 MG Q 2 WEEKS SQ
     Route: 058
     Dates: start: 20080819
  3. MONTELUKAST SODIUM [Concomitant]
  4. PRILOSEC [Concomitant]
  5. FLEXERIL [Concomitant]
  6. LISINOPRIL [Concomitant]
  7. PULMICORT [Concomitant]
  8. FLUTICASONE-SALMETEROL -ADVAIR DISKUS- [Concomitant]
  9. ALBUTEROL [Concomitant]
  10. CONJUGATED ESTROGENS-MEDROXYPROGESTERONE -PREMPRO- [Concomitant]
  11. FLONASE [Concomitant]
  12. CITRACAL + D [Concomitant]

REACTIONS (7)
  - BLOOD PRESSURE DIASTOLIC INCREASED [None]
  - BRONCHOSPASM [None]
  - COUGH [None]
  - FEELING HOT [None]
  - PRURITUS GENERALISED [None]
  - URTICARIA [None]
  - WHEEZING [None]
